FAERS Safety Report 7244239-9 (Version None)
Quarter: 2011Q1

REPORT INFORMATION
  Report Type: 
  Country: None (occurrence: None)
  Receive Date: 20110125
  Receipt Date: 20101130
  Transmission Date: 20110831
  Serious: Yes (Hospitalization, Other)
  Sender: FDA-Public Use
  Company Number: GB-BAYER-201035459GPV

PATIENT
  Sex: Male

DRUGS (1)
  1. BETAFERON [Suspect]
     Indication: MULTIPLE SCLEROSIS
     Route: 058

REACTIONS (5)
  - PETIT MAL EPILEPSY [None]
  - HEPATIC FUNCTION ABNORMAL [None]
  - EPILEPSY [None]
  - AMNESIA [None]
  - TRANSIENT ISCHAEMIC ATTACK [None]
